FAERS Safety Report 5700547-1 (Version None)
Quarter: 2008Q2

REPORT INFORMATION
  Report Type: 
  Country: None (occurrence: None)
  Receive Date: 20080410
  Receipt Date: 20080331
  Transmission Date: 20081010
  Serious: Yes (Hospitalization)
  Sender: FDA-Public Use
  Company Number: US-KINGPHARMUSA00001-K200800374

PATIENT

DRUGS (6)
  1. ALTACE [Suspect]
     Indication: HYPERTENSION
     Route: 048
     Dates: start: 20040101, end: 20060401
  2. LANTUS [Suspect]
     Indication: DIABETES MELLITUS
     Route: 058
     Dates: end: 20060401
  3. METFORMIN HCL [Suspect]
     Indication: DIABETES MELLITUS
     Dates: start: 20040101, end: 20060401
  4. REPAGLINIDE [Suspect]
     Indication: DIABETES MELLITUS
     Dates: end: 20060401
  5. TACROLIMUS [Suspect]
     Indication: RENAL TRANSPLANT
     Dates: start: 19970101
  6. IRBESARTAN [Concomitant]
     Indication: HYPERTENSION
     Dates: start: 20060101, end: 20060401

REACTIONS (4)
  - ANAEMIA HAEMOLYTIC AUTOIMMUNE [None]
  - DIABETES MELLITUS [None]
  - DYSPNOEA [None]
  - SKIN CANCER [None]
